FAERS Safety Report 7194325-7 (Version None)
Quarter: 2010Q4

REPORT INFORMATION
  Report Type: 
  Country: None (occurrence: None)
  Receive Date: 20101124
  Receipt Date: 20101021
  Transmission Date: 20110411
  Serious: No
  Sender: FDA-Public Use
  Company Number: 019766

PATIENT
  Sex: Female
  Weight: 81.2 kg

DRUGS (3)
  1. LACOSAMIDE [Suspect]
     Indication: PARTIAL SEIZURES
     Dosage: SEE IMAGE
     Route: 048
     Dates: start: 20100108, end: 20100920
  2. LACOSAMIDE [Suspect]
     Indication: PARTIAL SEIZURES
     Dosage: SEE IMAGE
     Route: 048
     Dates: start: 20100921
  3. FELBATOL [Concomitant]

REACTIONS (3)
  - ATAXIA [None]
  - CONVULSION [None]
  - DISORIENTATION [None]
